FAERS Safety Report 24168502 (Version 1)
Quarter: 2024Q3

REPORT INFORMATION
  Report Type: Report from Study
  Country: US (occurrence: None)
  Receive Date: 20240802
  Receipt Date: 20240802
  Transmission Date: 20241016
  Serious: Yes (Death, Hospitalization, Other)
  Sender: ASTRAZENECA
  Company Number: 2024A110482

PATIENT
  Age: 25960 Day
  Sex: Female

DRUGS (1)
  1. TAGRISSO [Suspect]
     Active Substance: OSIMERTINIB
     Indication: Non-small cell lung cancer stage IV
     Dosage: 80.0MG UNKNOWN
     Route: 048
     Dates: start: 20220903, end: 20220918

REACTIONS (7)
  - Tracheal neoplasm [Fatal]
  - Rapid eye movement sleep behaviour disorder [Recovered/Resolved]
  - Fall [Unknown]
  - Shoulder fracture [Unknown]
  - Tremor [Recovered/Resolved]
  - Hallucination [Unknown]
  - Drug ineffective [Unknown]

NARRATIVE: CASE EVENT DATE: 20231001
